FAERS Safety Report 18017064 (Version 2)
Quarter: 2020Q3

REPORT INFORMATION
  Report Type: Spontaneous
  Country: DE (occurrence: DE)
  Receive Date: 20200714
  Receipt Date: 20200716
  Transmission Date: 20201103
  Serious: Yes (Hospitalization, Other)
  Sender: FDA-Public Use
  Company Number: DE-AUROBINDO-AUR-APL-2019-016936

PATIENT
  Age: 73 Year
  Sex: Female

DRUGS (6)
  1. HYDROCHLOROTHIAZIDE. [Suspect]
     Active Substance: HYDROCHLOROTHIAZIDE
     Indication: HYPERTENSION
     Dosage: 12.5 MILLIGRAM, ONCE A DAY
     Route: 065
     Dates: start: 2012
  2. HYPNOREX [Suspect]
     Active Substance: LITHIUM CARBONATE
     Dosage: 0.6 GRAM, ONCE A DAY
     Route: 065
  3. HYPNOREX [Suspect]
     Active Substance: LITHIUM CARBONATE
     Dosage: 1 GRAM, ONCE A DAY
     Route: 065
  4. ENALAPRIL [Suspect]
     Active Substance: ENALAPRIL
     Dosage: 10 MILLIGRAM, ONCE A DAY
     Route: 065
     Dates: start: 2012
  5. ENALAPRIL [Suspect]
     Active Substance: ENALAPRIL
     Indication: HYPERTENSION
     Dosage: 5 MILLIGRAM, ONCE A DAY
     Route: 065
  6. HYPNOREX [Suspect]
     Active Substance: LITHIUM CARBONATE
     Indication: BIPOLAR DISORDER
     Dosage: 0.9 GRAM, ONCE A DAY
     Route: 065

REACTIONS (10)
  - Depression [Recovering/Resolving]
  - Drug level increased [Unknown]
  - Disturbance in attention [Unknown]
  - Acute kidney injury [Unknown]
  - Toxicity to various agents [Unknown]
  - Accidental exposure to product [Unknown]
  - Tremor [Unknown]
  - Asthenia [Unknown]
  - Ataxia [Unknown]
  - Dizziness [Unknown]
